FAERS Safety Report 7373894-8 (Version None)
Quarter: 2011Q1

REPORT INFORMATION
  Report Type: 
  Country: None (occurrence: None)
  Receive Date: 20110325
  Receipt Date: 20110318
  Transmission Date: 20110831
  Serious: No
  Sender: FDA-Public Use
  Company Number: US-PFIZER INC-2011060169

PATIENT
  Sex: Female
  Weight: 58.9 kg

DRUGS (2)
  1. LIPITOR [Suspect]
     Indication: BLOOD CHOLESTEROL INCREASED
     Dosage: 20 MG, 1X/DAY
     Route: 048
     Dates: end: 20110316
  2. PRAVACHOL [Suspect]
     Dosage: UNK

REACTIONS (2)
  - MYALGIA [None]
  - DRUG INEFFECTIVE [None]
